FAERS Safety Report 4603548-X (Version None)
Quarter: 2005Q1

REPORT INFORMATION
  Report Type: 
  Country: None (occurrence: None)
  Receive Date: 20050310
  Receipt Date: 20050228
  Transmission Date: 20050727
  Serious: Yes (Other)
  Sender: FDA-Public Use
  Company Number: US-JNJFOC-20050300670

PATIENT
  Sex: Male
  Weight: 80.74 kg

DRUGS (10)
  1. REMICADE [Suspect]
     Indication: RHEUMATOID ARTHRITIS
     Route: 042
  2. LAMICTAL [Concomitant]
  3. ARAVA [Concomitant]
  4. TRICOR [Concomitant]
  5. ZOCOR [Concomitant]
  6. ZETIA [Concomitant]
  7. TOPROL-XL [Concomitant]
  8. ASPIRIN [Concomitant]
  9. PLAVIX [Concomitant]
  10. OXYCONTIN [Concomitant]

REACTIONS (2)
  - CORONARY ARTERY OCCLUSION [None]
  - DYSPNOEA [None]
